FAERS Safety Report 6805661-5 (Version None)
Quarter: 2010Q2

REPORT INFORMATION
  Report Type: 
  Country: None (occurrence: None)
  Receive Date: 20100628
  Receipt Date: 20080201
  Transmission Date: 20101027
  Serious: Yes (Other)
  Sender: FDA-Public Use
  Company Number: US-PFIZER INC-2007106715

PATIENT
  Sex: Male
  Weight: 88.5 kg

DRUGS (5)
  1. GEODON [Suspect]
     Indication: DEPRESSION
     Route: 048
     Dates: start: 20071214, end: 20071218
  2. GEODON [Suspect]
     Indication: BIPOLAR I DISORDER
  3. ALL OTHER THERAPEUTIC PRODUCTS [Suspect]
  4. EFFEXOR [Concomitant]
     Route: 048
  5. KLONOPIN [Concomitant]
     Route: 048

REACTIONS (4)
  - DYSPNOEA [None]
  - HYPERSENSITIVITY [None]
  - LIP SWELLING [None]
  - SWOLLEN TONGUE [None]
